FAERS Safety Report 8889100 (Version 1)
Quarter: 2012Q4

REPORT INFORMATION
  Report Type: 
  Country: US (occurrence: US)
  Receive Date: 20121106
  Receipt Date: 20121106
  Transmission Date: 20130627
  Serious: Yes (Disabling)
  Sender: FDA-Public Use
  Company Number: US-PFIZER INC-2012276536

PATIENT
  Age: 51 Year
  Sex: Male
  Weight: 79.37 kg

DRUGS (2)
  1. LYRICA [Suspect]
     Indication: NERVE DAMAGE
     Dosage: 200 mg, 3x/day
     Route: 048
     Dates: end: 201210
  2. MS CONTIN [Concomitant]
     Dosage: UNK

REACTIONS (5)
  - Ill-defined disorder [Unknown]
  - Drug effect incomplete [Unknown]
  - Neck pain [Unknown]
  - Back pain [Unknown]
  - Pain [Unknown]
